FAERS Safety Report 8368174-8 (Version None)
Quarter: 2012Q2

REPORT INFORMATION
  Report Type: 
  Country: None (occurrence: None)
  Receive Date: 20120517
  Receipt Date: 20120502
  Transmission Date: 20120825
  Serious: Yes (Other)
  Sender: FDA-Public Use
  Company Number: CHPA2012US010330

PATIENT
  Age: 82 Year
  Sex: Male

DRUGS (1)
  1. EXCEDRIN EXTRA STRENGTH TABLETS [Suspect]
     Indication: MIGRAINE
     Dosage: 2-4 TABLETS, PRN
     Route: 048
     Dates: start: 19620101

REACTIONS (6)
  - OFF LABEL USE [None]
  - THERAPEUTIC RESPONSE UNEXPECTED [None]
  - EXTRASYSTOLES [None]
  - ATRIAL FIBRILLATION [None]
  - CHEST PAIN [None]
  - HEART RATE INCREASED [None]
